FAERS Safety Report 4944988-9 (Version None)
Quarter: 2006Q1

REPORT INFORMATION
  Report Type: 
  Country: None (occurrence: None)
  Receive Date: 20060117
  Receipt Date: 20050510
  Transmission Date: 20060701
  Serious: Yes (Hospitalization)
  Sender: FDA-Public Use
  Company Number: A03200501408

PATIENT
  Age: 52 Year
  Sex: Female
  Weight: 76.19 kg

DRUGS (7)
  1. PLAVIX [Suspect]
     Indication: CATHETERISATION CARDIAC
     Dosage: 75 MG DAILY AFTER A LOADING DOSE OF 600 MG ON DAY ONE - ORAL
     Route: 048
     Dates: start: 20050413
  2. PLAVIX [Suspect]
     Indication: STENT PLACEMENT
     Dosage: 75 MG DAILY AFTER A LOADING DOSE OF 600 MG ON DAY ONE - ORAL
     Route: 048
     Dates: start: 20050413
  3. ATORVASTATIN CALCIUM [Concomitant]
  4. ESTROGENS CONJUGATED [Concomitant]
  5. LEVOTHYROXINE SODIUM [Concomitant]
  6. ACETYLSALICYLIC ACID SRT [Concomitant]
  7. FUROSEMIDE [Concomitant]

REACTIONS (7)
  - ASTHENIA [None]
  - COLITIS [None]
  - ERYTHEMA [None]
  - PRESCRIBED OVERDOSE [None]
  - ULCER HAEMORRHAGE [None]
  - VOMITING [None]
  - WHITE BLOOD CELL COUNT INCREASED [None]
